FAERS Safety Report 7922367-X (Version None)
Quarter: 2011Q4

REPORT INFORMATION
  Report Type: 
  Country: None (occurrence: None)
  Receive Date: 20111117
  Receipt Date: 20110119
  Transmission Date: 20120403
  Serious: No
  Sender: FDA-Public Use
  Company Number: US-AMGEN-USASP2011003526

PATIENT
  Age: 67 Year
  Sex: Female

DRUGS (1)
  1. ENBREL [Suspect]
     Indication: RHEUMATOID ARTHRITIS
     Dates: start: 19980101, end: 20101101

REACTIONS (8)
  - OSTEOPOROSIS [None]
  - EXOSTOSIS [None]
  - BACK PAIN [None]
  - SWELLING [None]
  - ABDOMINAL PAIN [None]
  - INTERVERTEBRAL DISC DISORDER [None]
  - CONSTIPATION [None]
  - DIARRHOEA [None]
